FAERS Safety Report 6453122-8 (Version None)
Quarter: 2009Q4

REPORT INFORMATION
  Report Type: 
  Country: None (occurrence: None)
  Receive Date: 20091123
  Receipt Date: 20091123
  Transmission Date: 20100525
  Serious: No
  Sender: FDA-Public Use
  Company Number: None

PATIENT

DRUGS (1)
  1. SORAFENIB 400MG DAILY [Suspect]
     Indication: HEPATIC NEOPLASM MALIGNANT
     Dosage: 400MG BID P.O.
     Route: 048
     Dates: start: 20091107, end: 20091112

REACTIONS (6)
  - DYSPNOEA [None]
  - GASTRIC DILATATION [None]
  - MECHANICAL VENTILATION [None]
  - PLEURAL EFFUSION [None]
  - PULMONARY HAEMORRHAGE [None]
  - TACHYCARDIA [None]
